FAERS Safety Report 15512311 (Version 1)
Quarter: 2018Q4

REPORT INFORMATION
  Report Type: Spontaneous
  Country: US (occurrence: US)
  Receive Date: 20181011
  Receipt Date: 20181011
  Transmission Date: 20190205
  Serious: No
  Sender: FDA-Public Use
  Company Number: None

PATIENT
  Age: 39 Year
  Sex: Male

DRUGS (1)
  1. TREMFYA [Suspect]
     Active Substance: GUSELKUMAB
     Dates: start: 201807

REACTIONS (4)
  - Psoriatic arthropathy [None]
  - Off label use [None]
  - Therapeutic response unexpected [None]
  - Psoriasis [None]

NARRATIVE: CASE EVENT DATE: 20180709
